FAERS Safety Report 8982995 (Version 2)
Quarter: 2013Q2

REPORT INFORMATION
  Report Type: Spontaneous
  Country: US (occurrence: US)
  Receive Date: 20121221
  Receipt Date: 20130401
  Transmission Date: 20140414
  Serious: Yes (Hospitalization)
  Sender: FDA-Public Use
  Company Number: US-GILEAD-2012-0066652

PATIENT
  Age: 75 Year
  Sex: Male

DRUGS (2)
  1. LETAIRIS [Suspect]
     Indication: PULMONARY ARTERIAL HYPERTENSION
     Dosage: 10 MG, UNK
     Route: 048
     Dates: start: 20071006
  2. TYVASO [Concomitant]

REACTIONS (3)
  - Catheterisation cardiac [Unknown]
  - Unevaluable event [Unknown]
  - Dyspnoea [Unknown]
